FAERS Safety Report 5986070-8 (Version None)
Quarter: 2008Q4

REPORT INFORMATION
  Report Type: 
  Country: None (occurrence: None)
  Receive Date: 20081205
  Receipt Date: 20081205
  Transmission Date: 20090506
  Serious: Yes (Life-Threatening, Hospitalization)
  Sender: FDA-Public Use
  Company Number: None

PATIENT
  Age: 25 Year
  Sex: Female
  Weight: 66.5 kg

DRUGS (4)
  1. SEASONALE [Suspect]
     Indication: ORAL CONTRACEPTION
     Dosage: 1 TABLET DAILY ORAL, LESS THAN ONE YEAR
     Route: 048
  2. ASPIRIN [Concomitant]
  3. DIAZEPAM [Concomitant]
  4. HYDROCODONE BITARTRATE + ACETAMINOPHEN [Concomitant]

REACTIONS (5)
  - PAIN IN EXTREMITY [None]
  - PLEURAL EFFUSION [None]
  - PULMONARY EMBOLISM [None]
  - PULMONARY INFARCTION [None]
  - TACHYCARDIA [None]
